FAERS Safety Report 12422909 (Version 1)
Quarter: 2016Q2

REPORT INFORMATION
  Report Type: Spontaneous
  Country: AT (occurrence: AT)
  Receive Date: 20160601
  Receipt Date: 20160601
  Transmission Date: 20160815
  Serious: Yes (Other)
  Sender: FDA-Public Use
  Company Number: AT-ACTELION-A-CH2016-134972

PATIENT
  Sex: Female

DRUGS (2)
  1. MEFENAMIC-ACID [Interacting]
     Active Substance: MEFENAMIC ACID
     Indication: PAIN
     Dosage: 500 MG, UNK
     Route: 048
     Dates: start: 2013, end: 20160414
  2. TRACLEER [Suspect]
     Active Substance: BOSENTAN
     Indication: SCLERODERMA
     Dosage: 125 MG, BID
     Route: 048
     Dates: start: 20150727, end: 20160414

REACTIONS (7)
  - Alanine aminotransferase increased [Recovered/Resolved]
  - Gamma-glutamyltransferase increased [Recovered/Resolved]
  - Blood albumin increased [Recovered/Resolved]
  - Drug interaction [Recovered/Resolved]
  - Aspartate aminotransferase increased [Recovered/Resolved]
  - Blood alkaline phosphatase increased [Recovered/Resolved]
  - Liver function test increased [Recovered/Resolved]

NARRATIVE: CASE EVENT DATE: 20160413
